FAERS Safety Report 11930060 (Version 1)
Quarter: 2016Q1

REPORT INFORMATION
  Report Type: Report from Study
  Country: NL (occurrence: NL)
  Receive Date: 20160120
  Receipt Date: 20160120
  Transmission Date: 20160526
  Serious: Yes (Other)
  Sender: FDA-Public Use
  Company Number: NL-AMGEN-NLDSL2016004210

PATIENT
  Age: 64 Year
  Sex: Female

DRUGS (15)
  1. CAPECITABINE. [Concomitant]
     Active Substance: CAPECITABINE
     Indication: METASTASES TO BONE
  2. XGEVA [Suspect]
     Active Substance: DENOSUMAB
     Indication: METASTASES TO BONE
  3. CALCIUM CARBONATE W/COLECALCIFEROL [Concomitant]
     Active Substance: CALCIUM CARBONATE\CHOLECALCIFEROL
     Dosage: 500 MG, UNK
     Dates: start: 20151105
  4. CAPECITABINE. [Concomitant]
     Active Substance: CAPECITABINE
     Indication: BREAST CANCER METASTATIC
     Dosage: 150 MG, UNK
     Dates: start: 20151106
  5. ESOMEPRAZOL                        /01479301/ [Concomitant]
     Active Substance: ESOMEPRAZOLE
     Dosage: 40 MG, UNK
     Route: 048
     Dates: start: 20130617
  6. TAMBOCOR [Concomitant]
     Active Substance: FLECAINIDE ACETATE
     Indication: ATRIAL FIBRILLATION
     Dosage: UNK
     Dates: start: 20130525
  7. PREDNISOLON                        /00016201/ [Concomitant]
     Active Substance: PREDNISOLONE
     Dosage: 05 MG, UNK
     Dates: start: 20150126
  8. VALSARTAN. [Concomitant]
     Active Substance: VALSARTAN
     Dosage: 80 MG, UNK
     Route: 048
     Dates: start: 20131004
  9. XGEVA [Suspect]
     Active Substance: DENOSUMAB
     Indication: BREAST CANCER METASTATIC
     Dosage: 120 MG, Q3WK
     Route: 058
     Dates: start: 20151105
  10. PREDNISON [Concomitant]
     Active Substance: PREDNISONE
     Indication: OSTEOPOROSIS POSTMENOPAUSAL
     Dosage: UNK
     Dates: start: 20051115
  11. SOTALOL. [Concomitant]
     Active Substance: SOTALOL
     Dosage: 80 MG, UNK
     Dates: start: 20130525
  12. OXYCODON [Concomitant]
     Active Substance: OXYCODONE
     Dosage: 05 MG, UNK
     Dates: start: 20151113
  13. METOCLOPRAMIDE. [Concomitant]
     Active Substance: METOCLOPRAMIDE
     Dosage: 10 MG, UNK
     Dates: start: 20151106
  14. LOPERAMIDE [Concomitant]
     Active Substance: LOPERAMIDE
     Dosage: 02 MG, UNK
     Dates: start: 20151106
  15. ACENOCOUMAROL [Concomitant]
     Active Substance: ACENOCOUMAROL
     Dosage: 01 MG, UNK
     Dates: start: 20150204

REACTIONS (1)
  - Terminal state [Unknown]

NARRATIVE: CASE EVENT DATE: 20160112
